FAERS Safety Report 4522002-7 (Version None)
Quarter: 2004Q4

REPORT INFORMATION
  Report Type: 
  Country: None (occurrence: None)
  Receive Date: 20041207
  Receipt Date: 20041123
  Transmission Date: 20050328
  Serious: Yes (Other)
  Sender: FDA-Public Use
  Company Number: USA040978553

PATIENT
  Age: 66 Year
  Sex: Female

DRUGS (18)
  1. FORTEO [Suspect]
     Indication: OSTEOPOROSIS
     Dates: start: 20040315, end: 20040815
  2. CALCIUM [Concomitant]
  3. SINGULAIR (MONTELUKAST) [Concomitant]
  4. FLOVENT [Concomitant]
  5. DILANTIN [Concomitant]
  6. ATROVENT (IPRATROPIUIM BROMIDE) [Concomitant]
  7. VICODIN [Concomitant]
  8. VALTREX [Concomitant]
  9. THEOPHYLLINE [Concomitant]
  10. LIPITOR [Concomitant]
  11. ESTRATESTS [Concomitant]
  12. ACTIFED [Concomitant]
  13. VITAMIN C [Concomitant]
  14. ALBUTEROL [Concomitant]
  15. THIAZIDE [Concomitant]
  16. ZYRTEC [Concomitant]
  17. MECLIZINE [Concomitant]
  18. LAXATIVE [Concomitant]

REACTIONS (2)
  - BLOOD CALCIUM INCREASED [None]
  - MEDICATION ERROR [None]
